FAERS Safety Report 4503520-4 (Version None)
Quarter: 2004Q4

REPORT INFORMATION
  Report Type: 
  Country: None (occurrence: None)
  Receive Date: 20041115
  Receipt Date: 20041029
  Transmission Date: 20050328
  Serious: Yes (Life-Threatening, Hospitalization)
  Sender: FDA-Public Use
  Company Number: STA-AE-04-MTX-525

PATIENT
  Age: 35 Year
  Sex: Female

DRUGS (8)
  1. RHEUMATREX [Suspect]
     Indication: RHEUMATOID ARTHRITIS
     Dosage: 2 MG 1X PER 1 WK, ORAL
     Route: 048
     Dates: start: 20040519, end: 20041006
  2. COLCHICINE (COLCICHINE) [Concomitant]
  3. OMEPRAZOLE [Concomitant]
  4. PREDNISOLONE [Concomitant]
  5. PAXIL [Concomitant]
  6. ZOLPIDEM TARTRATE [Concomitant]
  7. ROHYPNOL (FLUNITRAZEPAM) [Concomitant]
  8. PURSENNID (SENNA LEAF) [Concomitant]

REACTIONS (7)
  - ABASIA [None]
  - ARTHRALGIA [None]
  - CONDITION AGGRAVATED [None]
  - COUGH [None]
  - DRUG INEFFECTIVE [None]
  - MALAISE [None]
  - PRURITUS [None]
